FAERS Safety Report 15592370 (Version 1)
Quarter: 2018Q4

REPORT INFORMATION
  Report Type: Spontaneous
  Country: US (occurrence: US)
  Receive Date: 20181106
  Receipt Date: 20181106
  Transmission Date: 20190205
  Serious: No
  Sender: FDA-Public Use
  Company Number: US-009507513-1810USA013990

PATIENT
  Age: 31 Year
  Sex: Male

DRUGS (1)
  1. PREGNYL [Suspect]
     Active Substance: CHORIOGONADOTROPIN ALFA
     Indication: HORMONE REPLACEMENT THERAPY
     Dosage: 1 DOSAGE FORM, 1000 UNITS TIW
     Dates: start: 2003, end: 20181023

REACTIONS (8)
  - Lethargy [Unknown]
  - Drug effective for unapproved indication [Unknown]
  - Erectile dysfunction [Unknown]
  - Blood testosterone decreased [Unknown]
  - Emotional disorder [Unknown]
  - Asthenia [Unknown]
  - Fatigue [Unknown]
  - Product dose omission [Unknown]

NARRATIVE: CASE EVENT DATE: 20181028
